FAERS Safety Report 9878005 (Version 5)
Quarter: 2014Q2

REPORT INFORMATION
  Report Type: Spontaneous
  Country: US (occurrence: US)
  Receive Date: 20140206
  Receipt Date: 20140501
  Transmission Date: 20141212
  Serious: No
  Sender: FDA-Public Use
  Company Number: US-009507513-1402USA001070

PATIENT
  Sex: Female
  Weight: 137.41 kg

DRUGS (2)
  1. IMPLANON [Suspect]
     Indication: CONTRACEPTION
     Dosage: 1 ROD
     Route: 059
     Dates: start: 201105
  2. IMPLANON [Suspect]
     Dosage: UNK
     Route: 059
     Dates: start: 2008, end: 201105

REACTIONS (1)
  - Medical device complication [Unknown]
